FAERS Safety Report 9341460 (Version 1)
Quarter: 2013Q2

REPORT INFORMATION
  Report Type: Spontaneous
  Country: US (occurrence: US)
  Receive Date: 20130611
  Receipt Date: 20130611
  Transmission Date: 20140414
  Serious: Yes (Hospitalization, Other)
  Sender: FDA-Public Use
  Company Number: US-ELI_LILLY_AND_COMPANY-US201306000396

PATIENT
  Sex: Male

DRUGS (13)
  1. HUMALOG 25% LISPRO, 75% NPL [Suspect]
     Indication: TYPE 2 DIABETES MELLITUS
     Dosage: 25 U, EACH MORNING
     Dates: start: 2010
  2. HUMALOG 25% LISPRO, 75% NPL [Suspect]
     Dosage: 20 U, EACH EVENING
     Dates: start: 2010
  3. PROTONIX [Concomitant]
     Dosage: 20 MG, QD
  4. ATENOLOL [Concomitant]
     Dosage: 25 MG, QD
  5. FUROSEMIDE [Concomitant]
     Dosage: 40 MG, QD
  6. ATIVAN [Concomitant]
     Indication: SLEEP DISORDER
     Dosage: UNK, PRN
  7. DIGOXIN [Concomitant]
     Dosage: 0.125 MG, QD
  8. ZOLOFT [Concomitant]
     Dosage: 100 MG, QD
  9. SIMVASTATIN [Concomitant]
     Dosage: 40 MG, EACH EVENING
  10. KLOR-CON [Concomitant]
     Dosage: 10 MEQ, BID
  11. ALLOPURINOL [Concomitant]
     Dosage: 300 MG, QD
  12. LANTUS [Concomitant]
     Dosage: 75 U, EACH EVENING
  13. PRADAXA [Concomitant]
     Dosage: 150 MG, BID

REACTIONS (4)
  - Staphylococcal infection [Unknown]
  - Skin ulcer [Unknown]
  - Impaired healing [Unknown]
  - Blood glucose abnormal [Recovering/Resolving]
